FAERS Safety Report 18356522 (Version 1)
Quarter: 2020Q4

REPORT INFORMATION
  Report Type: Report from Study
  Country: CA (occurrence: CA)
  Receive Date: 20201007
  Receipt Date: 20201007
  Transmission Date: 20210114
  Serious: Yes (Other)
  Sender: FDA-Public Use
  Company Number: CA-JNJFOC-20200944228

PATIENT
  Sex: Male
  Weight: 89 kg

DRUGS (1)
  1. REMICADE [Suspect]
     Active Substance: INFLIXIMAB
     Indication: CROHN^S DISEASE
     Dosage: APPOINTMENT KEPT FOR SEPT 27TH AT 12:30 PM
     Route: 042
     Dates: start: 20191006

REACTIONS (2)
  - Eye infection [Unknown]
  - Skin cancer [Unknown]
